FAERS Safety Report 6719477-1 (Version None)
Quarter: 2010Q2

REPORT INFORMATION
  Report Type: 
  Country: None (occurrence: None)
  Receive Date: 20100511
  Receipt Date: 20100503
  Transmission Date: 20101027
  Serious: Yes (Death)
  Sender: FDA-Public Use
  Company Number: CA-ROCHE-688993

PATIENT
  Age: 37 Year
  Sex: Female

DRUGS (7)
  1. HERCEPTIN [Suspect]
     Dosage: DISCONTINUED TREATMENT BEFORE COMPLETING REGIMEN
     Route: 065
     Dates: start: 20080101
  2. XELODA [Suspect]
     Dosage: DISCONTINUED TREATMENT BEFORE COMPLETING REGIMEN. RECEIVED MORE THAN 3 CYCLES
     Route: 065
     Dates: start: 20090101
  3. FEC REGIMEN [Suspect]
     Dosage: RECEIVED AFTER SURGERY FOR PRIMARY BREAST CANCER
     Route: 065
     Dates: start: 20080101, end: 20080101
  4. GEMZAR [Suspect]
     Dosage: RECEIVED 2 CYCLES. DISCONTINUED TREATMENT BEFORE COMPLETING REGIMEN
     Route: 065
     Dates: start: 20091201
  5. PLATINOL [Suspect]
     Dosage: RECEIVED TWO CYCLES. DISCONTINUED TREATMENT BEFORE COMPLETING REGIMEN.
     Route: 065
     Dates: start: 20091201
  6. TAXOTERE [Suspect]
     Dosage: COMPLETED TREATMENT REGIMEN
     Route: 065
     Dates: start: 20080101, end: 20080101
  7. TYKERB [Suspect]
     Dosage: DISCONTINUED TREATMENT BEFORE COMPLETING REGIMEN.
     Route: 065
     Dates: start: 20090101

REACTIONS (1)
  - MALIGNANT NEOPLASM PROGRESSION [None]
